FAERS Safety Report 17881946 (Version 1)
Quarter: 2020Q2

REPORT INFORMATION
  Report Type: Spontaneous
  Country: DE (occurrence: DE)
  Receive Date: 20200610
  Receipt Date: 20200610
  Transmission Date: 20200714
  Serious: Yes (Death, Life-Threatening, Hospitalization, Other)
  Sender: FDA-Public Use
  Company Number: DE-MYLANLABS-2020M1055740

PATIENT
  Age: 84 Year
  Sex: Female

DRUGS (1)
  1. METFORMIN [Suspect]
     Active Substance: METFORMIN HYDROCHLORIDE
     Indication: TYPE 2 DIABETES MELLITUS
     Dosage: UNK

REACTIONS (8)
  - Multiple organ dysfunction syndrome [Fatal]
  - Cardiovascular disorder [Unknown]
  - Lactic acidosis [Fatal]
  - Vomiting [Unknown]
  - Mechanical ileus [Fatal]
  - Toxicity to various agents [Fatal]
  - Aspiration [Unknown]
  - Asphyxia [Unknown]
